FAERS Safety Report 25259534 (Version 2)
Quarter: 2025Q3

REPORT INFORMATION
  Report Type: Report from Study
  Country: US (occurrence: US)
  Receive Date: 20250501
  Receipt Date: 20250725
  Transmission Date: 20251021
  Serious: Yes (Other)
  Sender: EISAI
  Company Number: US-Eisai-EC-2025-183127

PATIENT
  Age: 61 Year
  Sex: Male

DRUGS (2)
  1. LENVIMA [Suspect]
     Active Substance: LENVATINIB
     Indication: Renal cancer
     Dates: start: 2025, end: 202503
  2. LENVIMA [Suspect]
     Active Substance: LENVATINIB
     Dates: start: 202503

REACTIONS (7)
  - Hepatitis [Unknown]
  - Rash pruritic [Unknown]
  - Rash erythematous [Unknown]
  - Diarrhoea [Unknown]
  - Headache [Unknown]
  - Pain in extremity [Unknown]
  - Abdominal discomfort [Unknown]

NARRATIVE: CASE EVENT DATE: 20250101
